FAERS Safety Report 8614940 (Version 2)
Quarter: 2012Q4

REPORT INFORMATION
  Report Type: 
  Country: US (occurrence: US)
  Receive Date: 20120614
  Receipt Date: 20120906
  Transmission Date: 20130627
  Serious: Yes (Other)
  Sender: FDA-Public Use
  Company Number: US-BRISTOL-MYERS SQUIBB COMPANY-16664252

PATIENT
  Age: 69 Year
  Sex: Female
  Weight: 71 kg

DRUGS (13)
  1. ORENCIA [Suspect]
     Indication: RHEUMATOID ARTHRITIS
     Dosage: Last dose:21Aug2012
     Route: 042
     Dates: start: 200908, end: 20120821
  2. MAXZIDE [Concomitant]
     Dosage: 37.5-25
  3. PROVERA [Concomitant]
     Indication: OSTEOPOROSIS
  4. VIVELLE [Concomitant]
     Dosage: patch
  5. OMEPRAZOLE [Concomitant]
     Indication: GASTROOESOPHAGEAL REFLUX DISEASE
  6. CLONAZEPAM [Concomitant]
  7. POTASSIUM [Concomitant]
  8. CRESTOR [Concomitant]
     Indication: HYPERLIPIDAEMIA
  9. DIOVAN [Concomitant]
     Indication: HYPERTENSION
  10. REMERON [Concomitant]
     Indication: DEPRESSION
  11. ATENOLOL [Concomitant]
     Indication: HYPERTENSION
  12. PREDNISONE [Concomitant]
  13. NEURONTIN [Concomitant]

REACTIONS (2)
  - Endovenous ablation [Unknown]
  - Neck pain [Unknown]
